FAERS Safety Report 16368000 (Version 2)
Quarter: 2019Q2

REPORT INFORMATION
  Report Type: Report from Study
  Country: GB (occurrence: GB)
  Receive Date: 20190529
  Receipt Date: 20190604
  Transmission Date: 20190711
  Serious: Yes (Other)
  Sender: FDA-Public Use
  Company Number: GB-BAXTER-2019BAX010097

PATIENT
  Age: 20 Year
  Sex: Female

DRUGS (22)
  1. SODIUM CHLORIDE. [Suspect]
     Active Substance: SODIUM CHLORIDE
     Dosage: DOSE RE-INTRODUCED
     Route: 065
     Dates: start: 20190516, end: 20190516
  2. MAGNESIUM SULPHATE [Suspect]
     Active Substance: MAGNESIUM SULFATE
     Dosage: DOSE RE-INTRODUCED
     Route: 065
     Dates: start: 20190516, end: 20190516
  3. GLUCOSE 50% W/V CONCENTRATE FOR SOLUTION FOR INFUSION [Suspect]
     Active Substance: DEXTROSE
     Indication: PARENTERAL NUTRITION
     Route: 065
     Dates: end: 20190516
  4. GLUCOSE 50% W/V CONCENTRATE FOR SOLUTION FOR INFUSION [Suspect]
     Active Substance: DEXTROSE
     Dosage: DOSE RE-INTRODUCED
     Route: 065
     Dates: start: 20190516, end: 20190516
  5. WATER FOR TPN [Suspect]
     Active Substance: WATER
     Dosage: DOSE RE-INTRODUCED
     Route: 065
     Dates: start: 20190516, end: 20190516
  6. SODIUM CHLORIDE. [Suspect]
     Active Substance: SODIUM CHLORIDE
     Indication: PARENTERAL NUTRITION
     Route: 065
     Dates: end: 20190516
  7. CALCIUM CHLORIDE. [Suspect]
     Active Substance: CALCIUM CHLORIDE
     Indication: PARENTERAL NUTRITION
     Dosage: CALCIUM CHLORIDE 1MMOL/ML
     Route: 065
     Dates: end: 20190516
  8. SODIUM GLYCEROPHOSPHATE [Suspect]
     Active Substance: SODIUM GLYCEROPHOSPHATE
     Dosage: DOSE RE-INTRODUCED
     Route: 065
     Dates: start: 20190516, end: 20190516
  9. SYNTHAMIN [Suspect]
     Active Substance: AMINO ACIDS
     Indication: PARENTERAL NUTRITION
     Route: 065
     Dates: end: 20190516
  10. CERNEVIT [Suspect]
     Active Substance: VITAMINS
     Indication: PARENTERAL NUTRITION
     Route: 065
     Dates: end: 20190516
  11. CERNEVIT [Suspect]
     Active Substance: VITAMINS
     Dosage: DOSE RE-INTRODUCED
     Route: 065
     Dates: start: 20190516, end: 20190516
  12. POTASSIUM CHLORIDE. [Suspect]
     Active Substance: POTASSIUM CHLORIDE
     Dosage: DOSE RE-INTRODUCED
     Route: 065
     Dates: start: 20190516, end: 20190516
  13. CALCIUM CHLORIDE. [Suspect]
     Active Substance: CALCIUM CHLORIDE
     Dosage: CALCIUM CHLORIDE 1MMOL/ML, DOSE RE-INTRODUCED
     Route: 065
     Dates: start: 20190516, end: 20190516
  14. SODIUM GLYCEROPHOSPHATE [Suspect]
     Active Substance: SODIUM GLYCEROPHOSPHATE
     Indication: PARENTERAL NUTRITION
     Route: 065
     Dates: end: 20190516
  15. WATER FOR INJECTION [Suspect]
     Active Substance: WATER
     Indication: PARENTERAL NUTRITION
     Route: 065
     Dates: end: 20190516
  16. CLINOLEIC 20% [Suspect]
     Active Substance: OLIVE OIL\SOYBEAN OIL
     Indication: PARENTERAL NUTRITION
     Route: 065
     Dates: end: 20190516
  17. CLINOLEIC 20% [Suspect]
     Active Substance: OLIVE OIL\SOYBEAN OIL
     Dosage: DOSE RE-INTRODUCED
     Route: 065
     Dates: start: 20190516, end: 20190516
  18. WATER FOR INJECTION [Suspect]
     Active Substance: WATER
     Route: 065
     Dates: start: 20190516, end: 20190516
  19. WATER FOR TPN [Suspect]
     Active Substance: WATER
     Indication: PARENTERAL NUTRITION
     Route: 065
     Dates: end: 20190516
  20. POTASSIUM CHLORIDE. [Suspect]
     Active Substance: POTASSIUM CHLORIDE
     Indication: PARENTERAL NUTRITION
     Route: 065
     Dates: end: 20190516
  21. SYNTHAMIN [Suspect]
     Active Substance: AMINO ACIDS
     Dosage: DOSE RE-INTRODUCED
     Route: 065
     Dates: start: 20190516, end: 20190516
  22. MAGNESIUM SULPHATE [Suspect]
     Active Substance: MAGNESIUM SULFATE
     Indication: PARENTERAL NUTRITION
     Route: 065
     Dates: end: 20190516

REACTIONS (4)
  - Loss of consciousness [Unknown]
  - Syncope [Unknown]
  - Palpitations [Unknown]
  - Chest pain [Recovering/Resolving]

NARRATIVE: CASE EVENT DATE: 20190516
